FAERS Safety Report 13670665 (Version 1)
Quarter: 2017Q2

REPORT INFORMATION
  Report Type: Spontaneous
  Country: US (occurrence: US)
  Receive Date: 20170620
  Receipt Date: 20170620
  Transmission Date: 20170830
  Serious: Yes (Death, Hospitalization)
  Sender: FDA-Public Use
  Company Number: US-KERYX BIOPHARMACEUTICALS INC.-2017US002958

PATIENT
  Age: 78 Year
  Sex: Male

DRUGS (1)
  1. AURYXIA [Suspect]
     Active Substance: TETRAFERRIC TRICITRATE DECAHYDRATE
     Indication: HYPERPHOSPHATAEMIA
     Dosage: 8 G (8 TABLETS), DAILY
     Route: 048
     Dates: start: 20170202

REACTIONS (3)
  - Cardiac arrest [Fatal]
  - Hospitalisation [Unknown]
  - Cardiac pacemaker adjustment [Unknown]

NARRATIVE: CASE EVENT DATE: 20170518
